FAERS Safety Report 4380312-0 (Version None)
Quarter: 2004Q2

REPORT INFORMATION
  Report Type: 
  Country: None (occurrence: None)
  Receive Date: 20040614
  Receipt Date: 20040604
  Transmission Date: 20050107
  Serious: Yes (Other)
  Sender: FDA-Public Use
  Company Number: 2004029686

PATIENT
  Age: 35 Year
  Sex: Male

DRUGS (1)
  1. VIRACEPT (TABLET) (NELFINAVIR MESILATE) [Suspect]
     Indication: HIV INFECTION
     Dates: start: 19980701, end: 20000301

REACTIONS (4)
  - ARTHRALGIA [None]
  - ASEPTIC NECROSIS BONE [None]
  - BLOOD VISCOSITY INCREASED [None]
  - HYPERCHOLESTEROLAEMIA [None]
